FAERS Safety Report 21044044 (Version 2)
Quarter: 2023Q2

REPORT INFORMATION
  Report Type: Report from Study
  Country: GB (occurrence: GB)
  Receive Date: 20220705
  Receipt Date: 20230613
  Transmission Date: 20230721
  Serious: Yes (Disabling)
  Sender: FDA-Public Use
  Company Number: GB-NOVARTISPH-NVSC2022GB008433

PATIENT
  Sex: Female

DRUGS (2)
  1. SIPONIMOD [Suspect]
     Active Substance: SIPONIMOD
     Indication: Secondary progressive multiple sclerosis
     Dosage: 1 MG, QD
     Route: 048
     Dates: start: 20220110
  2. SIPONIMOD [Suspect]
     Active Substance: SIPONIMOD
     Dosage: 2 MG, QD
     Route: 048

REACTIONS (14)
  - Fine motor skill dysfunction [Not Recovered/Not Resolved]
  - Dry skin [Unknown]
  - Malaise [Recovered/Resolved]
  - Headache [Recovered/Resolved]
  - Eye disorder [Unknown]
  - Heavy menstrual bleeding [Unknown]
  - Dysstasia [Unknown]
  - Peripheral swelling [Unknown]
  - Breast pain [Unknown]
  - Condition aggravated [Unknown]
  - Sensory loss [Unknown]
  - Pain in extremity [Unknown]
  - COVID-19 [Recovered/Resolved]
  - Malaise [Unknown]

NARRATIVE: CASE EVENT DATE: 20230512
